FAERS Safety Report 16106377 (Version 2)
Quarter: 2019Q2

REPORT INFORMATION
  Report Type: Spontaneous
  Country: AT (occurrence: AT)
  Receive Date: 20190322
  Receipt Date: 20190515
  Transmission Date: 20190711
  Serious: Yes (Hospitalization)
  Sender: FDA-Public Use
  Company Number: AT-EISAI MEDICAL RESEARCH-EC-2019-053853

PATIENT
  Age: 22 Year
  Sex: Female

DRUGS (17)
  1. INOVELON [Interacting]
     Active Substance: RUFINAMIDE
     Route: 048
     Dates: start: 20181127, end: 20190123
  2. GEROLAMIC [Interacting]
     Active Substance: LAMOTRIGINE
     Indication: PRODUCT USED FOR UNKNOWN INDICATION
     Dosage: 100 MG - 50 MG -100 MG
     Route: 065
     Dates: end: 20181126
  3. PANTOPRAZOLE [Concomitant]
     Active Substance: PANTOPRAZOLE
     Route: 065
     Dates: start: 20190124
  4. DEPOCON DEPOT [Concomitant]
     Indication: CONTRACEPTION
     Dosage: DOSE UNKNOWN
     Route: 058
     Dates: start: 2019
  5. GEROLAMIC [Interacting]
     Active Substance: LAMOTRIGINE
     Dosage: 100 MG - 0 - 200 MG
     Route: 065
     Dates: start: 20181127, end: 20181225
  6. PANTOPRAZOLE [Concomitant]
     Active Substance: PANTOPRAZOLE
     Indication: PRODUCT USED FOR UNKNOWN INDICATION
     Route: 065
     Dates: start: 20181226, end: 20190123
  7. INOVELON [Interacting]
     Active Substance: RUFINAMIDE
     Route: 048
     Dates: start: 2019
  8. GEROLAMIC [Interacting]
     Active Substance: LAMOTRIGINE
     Route: 065
     Dates: start: 20181226, end: 201902
  9. DEPAKINE CHRONO [Interacting]
     Active Substance: VALPROATE SODIUM
     Indication: PRODUCT USED FOR UNKNOWN INDICATION
     Route: 065
     Dates: end: 20181126
  10. INOVELON [Interacting]
     Active Substance: RUFINAMIDE
     Dosage: DOWN-TITRATION (UNKNOWN DOSE AND FREQUENCY)
     Route: 048
     Dates: start: 20190124, end: 2019
  11. GEROLAMIC [Interacting]
     Active Substance: LAMOTRIGINE
     Dosage: DOSE AND FREQUENCY UNKNOWN
     Route: 065
     Dates: start: 201902
  12. INOVELON [Suspect]
     Active Substance: RUFINAMIDE
     Indication: LENNOX-GASTAUT SYNDROME
     Route: 048
     Dates: start: 2018, end: 20181126
  13. FRISIUM [Concomitant]
     Active Substance: CLOBAZAM
     Indication: PRODUCT USED FOR UNKNOWN INDICATION
     Route: 065
     Dates: end: 20181126
  14. MEXALEN [Concomitant]
     Active Substance: ACETAMINOPHEN
     Route: 065
     Dates: start: 20190212
  15. FRISIUM [Concomitant]
     Active Substance: CLOBAZAM
     Route: 065
     Dates: start: 20181226
  16. DEPAKINE CHRONO [Interacting]
     Active Substance: VALPROATE SODIUM
     Route: 065
     Dates: start: 20181127
  17. FRISIUM [Concomitant]
     Active Substance: CLOBAZAM
     Route: 065
     Dates: start: 20181127, end: 20181225

REACTIONS (2)
  - Encephalopathy [Recovered/Resolved]
  - Drug interaction [Recovered/Resolved]

NARRATIVE: CASE EVENT DATE: 201812
